FAERS Safety Report 25077689 (Version 1)
Quarter: 2025Q1

REPORT INFORMATION
  Report Type: Spontaneous
  Country: TR (occurrence: TR)
  Receive Date: 20250314
  Receipt Date: 20250314
  Transmission Date: 20250409
  Serious: Yes (Hospitalization)
  Sender: ROCHE
  Company Number: TR-ROCHE-10000222923

PATIENT
  Age: 6 Year
  Sex: Female

DRUGS (1)
  1. TOCILIZUMAB [Suspect]
     Active Substance: TOCILIZUMAB
     Indication: Encephalitis autoimmune
     Route: 065

REACTIONS (5)
  - Mastoiditis [Recovered/Resolved]
  - Meningitis [Recovered/Resolved]
  - CNS ventriculitis [Recovered/Resolved]
  - Cerebral venous sinus thrombosis [Recovered/Resolved]
  - Pneumococcal infection [Recovered/Resolved]
